FAERS Safety Report 17955497 (Version 1)
Quarter: 2020Q2

REPORT INFORMATION
  Report Type: Spontaneous
  Country: US (occurrence: US)
  Receive Date: 20200626
  Receipt Date: 20200626
  Transmission Date: 20200714
  Serious: No
  Sender: FDA-Public Use
  Company Number: None

PATIENT
  Sex: Female

DRUGS (1)
  1. AMBRISENTAN 10MG [Suspect]
     Active Substance: AMBRISENTAN
     Route: 048

REACTIONS (10)
  - Stomatitis [None]
  - Abdominal discomfort [None]
  - Joint swelling [None]
  - Dyspnoea [None]
  - Peripheral swelling [None]
  - Decreased appetite [None]
  - Pyrexia [None]
  - Asthenia [None]
  - Pruritus [None]
  - Fatigue [None]
